FAERS Safety Report 16432463 (Version 1)
Quarter: 2019Q2

REPORT INFORMATION
  Report Type: Spontaneous
  Country: IT (occurrence: IT)
  Receive Date: 20190614
  Receipt Date: 20190614
  Transmission Date: 20190711
  Serious: Yes (Hospitalization)
  Sender: FDA-Public Use
  Company Number: PHHY2019IT135874

PATIENT
  Age: 88 Year
  Sex: Female

DRUGS (2)
  1. COVERLAM [Suspect]
     Active Substance: AMLODIPINE BESYLATE\PERINDOPRIL ARGININE
     Indication: HYPERTENSION
     Dosage: 1 DF, QD
     Route: 048
     Dates: end: 20190607
  2. TEGRETOL [Suspect]
     Active Substance: CARBAMAZEPINE
     Indication: FACIAL NEURALGIA
     Dosage: 500 MG, QD
     Route: 048

REACTIONS (3)
  - Hyponatraemia [Unknown]
  - Asthenia [Unknown]
  - Oromandibular dystonia [Unknown]

NARRATIVE: CASE EVENT DATE: 20190605
